FAERS Safety Report 24692101 (Version 2)
Quarter: 2024Q4

REPORT INFORMATION
  Report Type: Spontaneous
  Country: US (occurrence: None)
  Receive Date: 20241203
  Receipt Date: 20241213
  Transmission Date: 20250115
  Serious: Yes (Other)
  Sender: INFORLIFE
  Company Number: US-INFO-20240367

PATIENT
  Age: 78 Year
  Sex: Female

DRUGS (1)
  1. NOREPINEPHRINE [Suspect]
     Active Substance: NOREPINEPHRINE\NOREPINEPHRINE BITARTRATE
     Dosage: BATCH EXPIRATION DATE: MAR-2026? ()
     Route: 040

REACTIONS (2)
  - Hypotension [Recovered/Resolved]
  - Wrong device used [Unknown]
